FAERS Safety Report 4886012-2 (Version None)
Quarter: 2006Q1

REPORT INFORMATION
  Report Type: 
  Country: None (occurrence: None)
  Receive Date: 20060118
  Receipt Date: 20060118
  Transmission Date: 20060701
  Serious: No
  Sender: FDA-Public Use
  Company Number: None

PATIENT
  Age: 55 Year
  Sex: Female
  Weight: 120.2032 kg

DRUGS (2)
  1. TOPAMAX [Suspect]
     Indication: MIGRAINE PROPHYLAXIS
     Dosage: 1/2 TAB BID PO
     Route: 048
     Dates: start: 20060105, end: 20060115
  2. TOPAMAX [Suspect]
     Indication: WEIGHT CONTROL
     Dosage: 1/2 TAB BID PO
     Route: 048
     Dates: start: 20060105, end: 20060115

REACTIONS (1)
  - ANGLE CLOSURE GLAUCOMA [None]
